FAERS Safety Report 5015355-7 (Version None)
Quarter: 2006Q2

REPORT INFORMATION
  Report Type: 
  Country: None (occurrence: None)
  Receive Date: 20060530
  Receipt Date: 20060530
  Transmission Date: 20061013
  Serious: Yes (Hospitalization)
  Sender: FDA-Public Use
  Company Number: None

PATIENT
  Sex: Female
  Weight: 43.5453 kg

DRUGS (7)
  1. REVLIMID [Suspect]
     Indication: CONDITION AGGRAVATED
     Dosage: 25MG   QHS   PO
     Route: 048
     Dates: start: 20060303
  2. REVLIMID [Suspect]
     Indication: MULTIPLE MYELOMA
     Dosage: 25MG   QHS   PO
     Route: 048
     Dates: start: 20060303
  3. AREDIA [Concomitant]
  4. PROCRIT [Concomitant]
  5. GLIPIZIDE [Concomitant]
  6. WARFARIN [Concomitant]
  7. COMPAZINE [Concomitant]

REACTIONS (8)
  - ASTHENIA [None]
  - BONE MARROW FAILURE [None]
  - DEHYDRATION [None]
  - FEBRILE NEUTROPENIA [None]
  - NAUSEA [None]
  - PNEUMONIA [None]
  - THROMBOCYTOPENIA [None]
  - VOMITING [None]
